FAERS Safety Report 4313358-9 (Version None)
Quarter: 2004Q1

REPORT INFORMATION
  Report Type: 
  Country: None (occurrence: None)
  Receive Date: 20040304
  Receipt Date: 20040223
  Transmission Date: 20041129
  Serious: Yes (Death)
  Sender: FDA-Public Use
  Company Number: US-JNJFOC-20040205007

PATIENT
  Age: 82 Year
  Sex: Female

DRUGS (1)
  1. DURAGESIC [Suspect]
     Indication: CANCER PAIN
     Dosage: 75 UG/HR, 1 IN 72 HOURS, TRANSDERMAL
     Route: 062
     Dates: end: 20040205

REACTIONS (2)
  - DRUG INEFFECTIVE [None]
  - METASTASIS [None]
